FAERS Safety Report 11341602 (Version 1)
Quarter: 2015Q3

REPORT INFORMATION
  Report Type: Spontaneous
  Country: US (occurrence: None)
  Receive Date: 20150803
  Receipt Date: 20150803
  Transmission Date: 20151125
  Serious: Yes (Disabling)
  Sender: FDA-Public Use
  Company Number: None

PATIENT
  Age: 42 Year
  Sex: Male
  Weight: 86.18 kg

DRUGS (1)
  1. PROPECIA [Suspect]
     Active Substance: FINASTERIDE
     Indication: ALOPECIA
     Dosage: TAKEN BY MOUTH
     Dates: start: 19990901, end: 20121001

REACTIONS (4)
  - Erectile dysfunction [None]
  - Cognitive disorder [None]
  - Impaired work ability [None]
  - Depression [None]

NARRATIVE: CASE EVENT DATE: 20121001
